FAERS Safety Report 10959579 (Version 2)
Quarter: 2015Q2

REPORT INFORMATION
  Report Type: Spontaneous
  Country: BE (occurrence: BE)
  Receive Date: 20150327
  Receipt Date: 20150408
  Transmission Date: 20150821
  Serious: Yes (Other)
  Sender: FDA-Public Use
  Company Number: BE-UCBSA-2015009839

PATIENT
  Age: 67 Year
  Sex: Female

DRUGS (7)
  1. NEULASTA [Concomitant]
     Active Substance: PEGFILGRASTIM
     Indication: PRODUCT USED FOR UNKNOWN INDICATION
     Dosage: UNK, ONCE DAILY (QD)
     Route: 058
     Dates: start: 20150320, end: 20150322
  2. EUSAPRIM [Concomitant]
     Indication: PRODUCT USED FOR UNKNOWN INDICATION
     Dosage: UNK, 2X/DAY (BID)
     Dates: start: 201405, end: 20150319
  3. PLATINOL [Concomitant]
     Active Substance: CISPLATIN
     Indication: CHEMOTHERAPY
     Dosage: 4XDHAP (3 DAYS) EVERY 21 DAYS
  4. DEXAMETHASONE. [Concomitant]
     Active Substance: DEXAMETHASONE
     Indication: CHEMOTHERAPY
     Dosage: 4XDHAP (3 DAYS) EVERY 21 DAYS
  5. KEPPRA [Suspect]
     Active Substance: LEVETIRACETAM
     Dosage: 750 MG DAILY
  6. ARA CELL [Concomitant]
     Active Substance: CYTARABINE
     Indication: CHEMOTHERAPY
     Dosage: 4XDHAP (3 DAYS) EVERY 21 DAYS
  7. KEPPRA [Suspect]
     Active Substance: LEVETIRACETAM
     Indication: PRODUCT USED FOR UNKNOWN INDICATION
     Dosage: 500 MG, 2X/DAY (BID)
     Dates: start: 201410

REACTIONS (4)
  - Leukopenia [Recovered/Resolved]
  - Subdural haematoma [Unknown]
  - Thrombocytopenia [Unknown]
  - Neutropenia [Recovered/Resolved]

NARRATIVE: CASE EVENT DATE: 20150319
